FAERS Safety Report 21028344 (Version 1)
Quarter: 2022Q2

REPORT INFORMATION
  Report Type: Spontaneous
  Country: CN (occurrence: CN)
  Receive Date: 20220630
  Receipt Date: 20220630
  Transmission Date: 20220721
  Serious: Yes (Hospitalization)
  Sender: FDA-Public Use
  Company Number: CN-FreseniusKabi-FK202209081

PATIENT
  Age: 83 Year
  Sex: Male
  Weight: 58.00 kg

DRUGS (1)
  1. EGG PHOSPHOLIPIDS\GLYCERIN\MEDIUM-CHAIN TRIGLYCERIDES\SOYBEAN OIL [Suspect]
     Active Substance: EGG PHOSPHOLIPIDS\GLYCERIN\MEDIUM-CHAIN TRIGLYCERIDES\SOYBEAN OIL
     Indication: Abdominal distension
     Route: 041
     Dates: start: 20220613, end: 20220614

REACTIONS (5)
  - Pyrexia [Recovering/Resolving]
  - Tachypnoea [Recovering/Resolving]
  - Abdominal distension [Recovering/Resolving]
  - Chills [Recovering/Resolving]
  - Back pain [Recovering/Resolving]

NARRATIVE: CASE EVENT DATE: 20220614
